FAERS Safety Report 5192921-X (Version None)
Quarter: 2006Q4

REPORT INFORMATION
  Report Type: 
  Country: None (occurrence: None)
  Receive Date: 20061228
  Receipt Date: 20060217
  Transmission Date: 20070319
  Serious: No
  Sender: FDA-Public Use
  Company Number: US-GLAXOSMITHKLINE-A0594191A

PATIENT
  Age: 47 Year
  Sex: Female

DRUGS (2)
  1. FLONASE [Suspect]
     Dosage: 1SPR SINGLE DOSE
     Route: 045
     Dates: start: 20050501, end: 20050501
  2. NO CONCURRENT MEDICATION [Concomitant]

REACTIONS (6)
  - EPISTAXIS [None]
  - HEADACHE [None]
  - NASAL OEDEMA [None]
  - PAIN [None]
  - SINUS DISORDER [None]
  - SWELLING FACE [None]
